FAERS Safety Report 8374407-4 (Version None)
Quarter: 2012Q2

REPORT INFORMATION
  Report Type: 
  Country: None (occurrence: None)
  Receive Date: 20120521
  Receipt Date: 20120516
  Transmission Date: 20120825
  Serious: Yes (Hospitalization)
  Sender: FDA-Public Use
  Company Number: US-BAYER-2011-011202

PATIENT
  Age: 28 Year
  Sex: Female
  Weight: 63.492 kg

DRUGS (7)
  1. YAZ [Suspect]
     Indication: ACNE
     Dosage: UNK
     Route: 048
     Dates: start: 20080101, end: 20090101
  2. KEFLEX [Concomitant]
     Dosage: 750 MG, UNK
     Dates: start: 20081205
  3. YASMIN [Suspect]
     Dosage: UNK
     Route: 048
     Dates: start: 20041101, end: 20071201
  4. METHYLPREDNISOLONE [Concomitant]
     Dosage: 4 MG, UNK
  5. TRIAMCINOLONE [Concomitant]
     Dosage: 0.1 %, UNK
  6. MEDROL [Concomitant]
     Indication: DERMATITIS CONTACT
  7. HYDROCODONE BITARTRATE AND ACETAMINOPHEN [Concomitant]
     Dosage: UNK
     Dates: start: 20081205

REACTIONS (7)
  - DEEP VEIN THROMBOSIS [None]
  - VENOUS INJURY [None]
  - ANXIETY [None]
  - VENOUS INSUFFICIENCY [None]
  - PAIN [None]
  - PULMONARY EMBOLISM [None]
  - POST-TRAUMATIC STRESS DISORDER [None]
